FAERS Safety Report 16052901 (Version 1)
Quarter: 2019Q1

REPORT INFORMATION
  Report Type: Spontaneous
  Country: JP (occurrence: JP)
  Receive Date: 20190308
  Receipt Date: 20190308
  Transmission Date: 20190418
  Serious: Yes (Other)
  Sender: FDA-Public Use
  Company Number: JP-ASTRAZENECA-2019SE23408

PATIENT
  Age: 80 Year
  Sex: Male

DRUGS (1)
  1. TAGRISSO [Suspect]
     Active Substance: OSIMERTINIB
     Indication: NON-SMALL CELL LUNG CANCER
     Route: 048
     Dates: start: 20180828, end: 20190130

REACTIONS (3)
  - Pleural effusion [Recovered/Resolved]
  - Malignant neoplasm progression [Unknown]
  - Drug tolerance [Unknown]

NARRATIVE: CASE EVENT DATE: 20190130
